FAERS Safety Report 20031884 (Version 1)
Quarter: 2021Q4

REPORT INFORMATION
  Report Type: Report from Study
  Country: MX (occurrence: MX)
  Receive Date: 20211103
  Receipt Date: 20211103
  Transmission Date: 20220303
  Serious: Yes (Hospitalization)
  Sender: FDA-Public Use
  Company Number: MX-ABBOTT-2021A-1341814

PATIENT
  Age: 27 Year
  Sex: Female
  Weight: 90 kg

DRUGS (5)
  1. EPIVAL [Suspect]
     Active Substance: DIVALPROEX SODIUM
     Indication: Schizophrenia
     Dosage: DAILY DOSE 1500 MILLIGRAM (ONE TABLETS EVERY 8 HOURS)
     Route: 048
     Dates: start: 199008
  2. OLANZAPINE [Concomitant]
     Active Substance: OLANZAPINE
     Indication: Product used for unknown indication
     Dosage: DAILY DOSE 10 MILLIGRAM
  3. BIPERIDEN [Concomitant]
     Active Substance: BIPERIDEN
     Indication: Product used for unknown indication
     Dosage: DAILY DOSE 4 MILLIGRAM 2 - 0 - 0
  4. ALPRAZOLAM [Concomitant]
     Active Substance: ALPRAZOLAM
     Indication: Product used for unknown indication
     Dosage: DAILYD DOSE 0.2 MILLIGRAM 0 - 0 - 1
  5. DIAZEPAM [Concomitant]
     Active Substance: DIAZEPAM
     Indication: Product used for unknown indication
     Dosage: DAILY DOSE 10 MILLIGRAM, 0 - 0 - 1

REACTIONS (6)
  - Mental disorder [Unknown]
  - Constipation [Unknown]
  - Hunger [Unknown]
  - Thirst [Unknown]
  - Abdominal discomfort [Unknown]
  - Product use in unapproved indication [Unknown]

NARRATIVE: CASE EVENT DATE: 19900101
